FAERS Safety Report 18054879 (Version 2)
Quarter: 2020Q3

REPORT INFORMATION
  Report Type: Spontaneous
  Country: EG (occurrence: EG)
  Receive Date: 20200722
  Receipt Date: 20200730
  Transmission Date: 20201103
  Serious: Yes (Other)
  Sender: FDA-Public Use
  Company Number: EG-NOVOPROD-741146

PATIENT
  Age: 65 Year
  Weight: 81 kg

DRUGS (7)
  1. MILGA [Concomitant]
     Active Substance: BENFOTIAMINE\CYANOCOBALAMIN\PYRIDOXINE HYDROCHLORIDE
     Indication: NEUROPATHY PERIPHERAL
     Dosage: FROM LAST JULY NOT STICK WITH THE DOSE
     Route: 065
  2. GALVUS MET [METFORMIN;VILDAGLIPTIN] [Concomitant]
     Indication: TYPE 2 DIABETES MELLITUS
     Dosage: 1 TABLET / FROM 4 YEARS
     Route: 065
  3. GENUPHIL [Concomitant]
     Active Substance: CHONDROITIN SULFATE (BOVINE)\DIMETHYL SULFONE\GLUCOSAMINE SULFATE
     Indication: ARTHROPATHY
     Dosage: TWICE DAILY FROM 2 YEARS
     Route: 065
  4. EZAPRIL [Concomitant]
     Indication: PROPHYLAXIS
     Dosage: BEFORE LAUNCH FROM 4 YEARS,  20 MG
     Route: 065
  5. CH ALPHA [Concomitant]
     Dosage: 1 SACHET DAILY FROM 2 YEARS .EFFERVESCENT
     Route: 065
  6. MIXTARD 30 HM PENFILL [Suspect]
     Active Substance: INSULIN HUMAN
     Indication: TYPE 2 DIABETES MELLITUS
     Dosage: 20 AM ?20 BEFORE LAUNCH
     Route: 058
  7. THIOTACID [Concomitant]
     Active Substance: .ALPHA.-LIPOIC ACID
     Indication: NEUROPATHY PERIPHERAL
     Dosage: 1 BEFORE LAUNCH FROM 3YEARS
     Route: 065

REACTIONS (3)
  - Dislocation of vertebra [Recovered/Resolved with Sequelae]
  - Intervertebral disc protrusion [Recovered/Resolved with Sequelae]
  - Fall [Unknown]

NARRATIVE: CASE EVENT DATE: 201710
